FAERS Safety Report 23991625 (Version 1)
Quarter: 2024Q2

REPORT INFORMATION
  Report Type: Spontaneous
  Country: CN (occurrence: CN)
  Receive Date: 20240619
  Receipt Date: 20240619
  Transmission Date: 20240716
  Serious: Yes (Hospitalization)
  Sender: FDA-Public Use
  Company Number: CN-Eisai-EC-2024-168274

PATIENT
  Age: 47 Year
  Sex: Male
  Weight: 83 kg

DRUGS (2)
  1. LENVATINIB [Suspect]
     Active Substance: LENVATINIB
     Indication: Hepatic cancer
     Route: 048
     Dates: start: 20240323, end: 20240424
  2. SINTILIMAB [Concomitant]
     Active Substance: SINTILIMAB
     Indication: Chemotherapy
     Dosage: FREQUENCY UNKNOWN
     Route: 041
     Dates: start: 20240323, end: 20240413

REACTIONS (5)
  - Myocardial necrosis marker increased [Recovering/Resolving]
  - Hepatic enzyme abnormal [Recovering/Resolving]
  - Asthenia [Recovering/Resolving]
  - Dizziness [Recovering/Resolving]
  - Myalgia [Recovering/Resolving]

NARRATIVE: CASE EVENT DATE: 20240415
